FAERS Safety Report 5507267-7 (Version None)
Quarter: 2007Q4

REPORT INFORMATION
  Report Type: 
  Country: None (occurrence: None)
  Receive Date: 20071105
  Receipt Date: 20071105
  Transmission Date: 20080405
  Serious: No
  Sender: FDA-Public Use
  Company Number: None

PATIENT
  Age: 26 Year
  Sex: Female
  Weight: 50.8029 kg

DRUGS (1)
  1. DESOGEN [Suspect]
     Indication: CONTRACEPTION
     Dosage: 1 TAB DAILY FOR 84 NITES STOP FOR 7 NITES THEN 84 ON 7 OFF
     Dates: start: 20070101

REACTIONS (1)
  - DEEP VEIN THROMBOSIS [None]
